FAERS Safety Report 11754643 (Version 1)
Quarter: 2015Q4

REPORT INFORMATION
  Report Type: Spontaneous
  Country: GB (occurrence: GB)
  Receive Date: 20151119
  Receipt Date: 20151119
  Transmission Date: 20160304
  Serious: Yes (Life-Threatening)
  Sender: FDA-Public Use
  Company Number: GB-JNJFOC-20151112102

PATIENT
  Age: 85 Year
  Sex: Female
  Weight: 65 kg

DRUGS (4)
  1. REMICADE [Suspect]
     Active Substance: INFLIXIMAB
     Indication: RHEUMATOID ARTHRITIS
     Dosage: 230 UNITS UNSPECIFIED
     Route: 042
     Dates: start: 20150619, end: 20150730
  2. SULFASALAZINE. [Concomitant]
     Active Substance: SULFASALAZINE
     Route: 065
  3. PARACETAMOL [Concomitant]
     Active Substance: ACETAMINOPHEN
     Route: 065
  4. ETANERCEPT [Suspect]
     Active Substance: ETANERCEPT
     Indication: RHEUMATOID ARTHRITIS
     Dosage: 50 UNITS UNSPECIFIED
     Route: 065
     Dates: start: 201405, end: 201505

REACTIONS (3)
  - Breast cancer metastatic [Not Recovered/Not Resolved]
  - Medication error [Unknown]
  - Disseminated tuberculosis [Not Recovered/Not Resolved]

NARRATIVE: CASE EVENT DATE: 2015
